FAERS Safety Report 9128676 (Version 1)
Quarter: 2013Q1

REPORT INFORMATION
  Report Type: Spontaneous
  Country: CA (occurrence: CA)
  Receive Date: 20130228
  Receipt Date: 20130228
  Transmission Date: 20140127
  Serious: Yes (Life-Threatening, Hospitalization)
  Sender: FDA-Public Use
  Company Number: CA-B.I. PHARMACEUTICALS,INC./RIDGEFIELD-2013-CN-00310CN

PATIENT
  Sex: Male
  Weight: 81 kg

DRUGS (3)
  1. PRADAX [Suspect]
     Dosage: 300 MG
     Route: 048
  2. METFORMIN [Concomitant]
  3. PERINDOPRIL [Concomitant]

REACTIONS (7)
  - Chest tube insertion [Recovered/Resolved]
  - Extradural haematoma [Recovered/Resolved]
  - Flail chest [Recovered/Resolved]
  - Haemorrhage intracranial [Recovered/Resolved]
  - Haemothorax [Recovered/Resolved]
  - Post procedural haemorrhage [Recovered/Resolved]
  - Road traffic accident [Recovered/Resolved]
